FAERS Safety Report 10038494 (Version 1)
Quarter: 2014Q1

REPORT INFORMATION
  Report Type: Spontaneous
  Country: US (occurrence: None)
  Receive Date: 20140306
  Receipt Date: 20140306
  Transmission Date: 20141002
  Serious: Yes (Hospitalization, Other)
  Sender: FDA-Public Use
  Company Number: 163-21880-13072860

PATIENT
  Age: 58 Year
  Sex: Male

DRUGS (3)
  1. REVLIMID (LENALIDOMIDE) (CAPSULES) [Suspect]
     Indication: PLASMA CELL MYELOMA
     Dosage: 25 MG, 21 IN 28 D, PO
     Route: 048
     Dates: start: 20121108
  2. DEXAMETHASONE (DEXAMETHASONE) (TABLETS) [Suspect]
     Indication: PRODUCT USED FOR UNKNOWN INDICATION
     Dosage: 40 MG, 10 IN 1 D, UNK
     Dates: start: 20121105
  3. WARFARIN (WARFARIN) (TABLETS) [Concomitant]

REACTIONS (6)
  - Thrombosis [None]
  - Vision blurred [None]
  - Weight decreased [None]
  - Full blood count decreased [None]
  - Abdominal discomfort [None]
  - Ageusia [None]
